FAERS Safety Report 11780205 (Version 1)
Quarter: 2015Q4

REPORT INFORMATION
  Report Type: Spontaneous
  Country: US (occurrence: US)
  Receive Date: 20151126
  Receipt Date: 20151126
  Transmission Date: 20160305
  Serious: No
  Sender: FDA-Public Use
  Company Number: US-JNJFOC-20151012229

PATIENT
  Age: 3 Year
  Sex: Female

DRUGS (1)
  1. INFANTS TYLENOL [Suspect]
     Active Substance: ACETAMINOPHEN
     Indication: ACCIDENTAL EXPOSURE TO PRODUCT
     Dosage: 23 TO 24 ML
     Route: 048
     Dates: start: 20151014, end: 20151014

REACTIONS (2)
  - Accidental exposure to product by child [Recovered/Resolved]
  - Failure of child resistant mechanism for pharmaceutical product [Unknown]

NARRATIVE: CASE EVENT DATE: 20151014
